FAERS Safety Report 4519102-4 (Version None)
Quarter: 2004Q4

REPORT INFORMATION
  Report Type: 
  Country: None (occurrence: None)
  Receive Date: 20041201
  Receipt Date: 20041115
  Transmission Date: 20050328
  Serious: Yes (Hospitalization)
  Sender: FDA-Public Use
  Company Number: 2004CG02286

PATIENT
  Age: 42 Year
  Sex: Male

DRUGS (5)
  1. OMEPRAZOLE [Suspect]
     Dosage: 20 MG QD PO
     Route: 048
     Dates: start: 20021215
  2. LAROXYL [Suspect]
     Dosage: 75 MG QD PO
     Route: 048
     Dates: start: 20021215
  3. TEMESTA [Suspect]
     Dosage: 1 MG QD PO
     Route: 048
     Dates: start: 20030101
  4. AUGMENTIN '125' [Suspect]
     Dosage: 3 G QD PO
     Route: 048
     Dates: start: 20030209
  5. SKENAN [Suspect]
     Dosage: 30 MG QD PO
     Route: 048

REACTIONS (4)
  - CYTOLYTIC HEPATITIS [None]
  - DRUG RASH WITH EOSINOPHILIA AND SYSTEMIC SYMPTOMS [None]
  - LYMPHADENOPATHY [None]
  - PRURIGO [None]
